FAERS Safety Report 15805065 (Version 2)
Quarter: 2019Q2

REPORT INFORMATION
  Report Type: Spontaneous
  Country: IT (occurrence: IT)
  Receive Date: 20190110
  Receipt Date: 20190415
  Transmission Date: 20190711
  Serious: Yes (Death)
  Sender: FDA-Public Use
  Company Number: IT-ROCHE-2241805

PATIENT
  Age: 68 Year

DRUGS (7)
  1. HALOPERIDOL. [Concomitant]
     Active Substance: HALOPERIDOL
  2. TECENTRIQ [Suspect]
     Active Substance: ATEZOLIZUMAB
     Indication: LUNG ADENOCARCINOMA
     Dosage: ONCE IN 3 WEEKS CYCLE
     Route: 042
     Dates: start: 20181121, end: 20181212
  3. CLOPIDOGREL [Concomitant]
     Active Substance: CLOPIDOGREL BISULFATE
  4. RANITIDINE. [Concomitant]
     Active Substance: RANITIDINE
  5. FLECAINIDE [Concomitant]
     Active Substance: FLECAINIDE
  6. SAMYR [Concomitant]
     Active Substance: ADEMETIONINE
  7. FUROSEMIDE. [Concomitant]
     Active Substance: FUROSEMIDE

REACTIONS (4)
  - Brain oedema [Fatal]
  - Cerebral haemorrhage [Fatal]
  - Dyspnoea [Fatal]
  - Blood pressure increased [Fatal]

NARRATIVE: CASE EVENT DATE: 20181223
